FAERS Safety Report 4810495-7 (Version None)
Quarter: 2005Q4

REPORT INFORMATION
  Report Type: 
  Country: None (occurrence: None)
  Receive Date: 20051025
  Receipt Date: 20051025
  Transmission Date: 20060501
  Serious: No
  Sender: FDA-Public Use
  Company Number: None

PATIENT
  Age: 64 Year
  Sex: Female
  Weight: 87.9978 kg

DRUGS (1)
  1. EFUDEX [Suspect]
     Indication: DYSPLASIA
     Dates: start: 20050728, end: 20050901

REACTIONS (18)
  - APPLICATION SITE PAIN [None]
  - APPLICATION SITE REACTION [None]
  - APPLICATION SITE SWELLING [None]
  - BLOOD URINE PRESENT [None]
  - CHILLS [None]
  - CIRCUMSTANCE OR INFORMATION CAPABLE OF LEADING TO MEDICATION ERROR [None]
  - DISCOMFORT [None]
  - DYSURIA [None]
  - GENITAL PRURITUS FEMALE [None]
  - IMPAIRED WORK ABILITY [None]
  - NAUSEA [None]
  - PYREXIA [None]
  - SELF-MEDICATION [None]
  - URINARY TRACT INFECTION [None]
  - VAGINAL SWELLING [None]
  - VOMITING [None]
  - VULVOVAGINAL DISCOMFORT [None]
  - WHITE BLOOD CELLS URINE POSITIVE [None]
